FAERS Safety Report 12937851 (Version 8)
Quarter: 2020Q4

REPORT INFORMATION
  Report Type: Spontaneous
  Country: US (occurrence: US)
  Receive Date: 20161114
  Receipt Date: 20201012
  Transmission Date: 20210113
  Serious: Yes (Other)
  Sender: FDA-Public Use
  Company Number: US-PFIZER INC-2016528069

PATIENT
  Age: 73 Year
  Sex: Female
  Weight: 61 kg

DRUGS (1)
  1. PREMARIN [Suspect]
     Active Substance: ESTROGENS, CONJUGATED
     Indication: POSTMENOPAUSE
     Dosage: 0.625 (UNIT NOT PROVIDED), 3X/WEEK
     Route: 067
     Dates: start: 2011

REACTIONS (4)
  - Bronchitis [Unknown]
  - Product use issue [Unknown]
  - Dyslexia [Unknown]
  - Off label use [Unknown]

NARRATIVE: CASE EVENT DATE: 2011
